FAERS Safety Report 13988700 (Version 2)
Quarter: 2017Q4

REPORT INFORMATION
  Report Type: Spontaneous
  Country: CN (occurrence: CN)
  Receive Date: 20170919
  Receipt Date: 20171003
  Transmission Date: 20180321
  Serious: Yes (Other)
  Sender: FDA-Public Use
  Company Number: CN-ABBVIE-17P-035-2106129-00

PATIENT
  Age: 34 Year
  Sex: Male

DRUGS (1)
  1. DEPAKINE CHRONO [Suspect]
     Active Substance: VALPROATE SODIUM
     Indication: EPILEPSY
     Dosage: EXTENDED RELEASE TABLET
     Route: 048
     Dates: start: 2014

REACTIONS (3)
  - Generalised tonic-clonic seizure [Recovered/Resolved]
  - Tic [Unknown]
  - Foaming at mouth [Unknown]

NARRATIVE: CASE EVENT DATE: 2014
